FAERS Safety Report 19320197 (Version 1)
Quarter: 2021Q2

REPORT INFORMATION
  Report Type: Spontaneous
  Country: GB (occurrence: GB)
  Receive Date: 20210528
  Receipt Date: 20210528
  Transmission Date: 20210717
  Serious: Yes (Other)
  Sender: FDA-Public Use
  Company Number: None

PATIENT
  Age: 66 Year
  Sex: Female

DRUGS (6)
  1. PARACETAMOL [Concomitant]
     Active Substance: ACETAMINOPHEN
  2. OMEPRAZOLE. [Concomitant]
     Active Substance: OMEPRAZOLE
  3. OZEMPIC [Suspect]
     Active Substance: SEMAGLUTIDE
     Indication: DIABETES MELLITUS
     Dosage: ?          QUANTITY:1 INJECTION(S);OTHER FREQUENCY:ONCE WEEKLY;?
     Route: 058
     Dates: start: 20200715, end: 20210214
  4. DAPDGLIFOZIN [Concomitant]
  5. LISINOPRIL. [Concomitant]
     Active Substance: LISINOPRIL
  6. GLUCOPHAGE [Concomitant]
     Active Substance: METFORMIN HYDROCHLORIDE

REACTIONS (2)
  - Glossodynia [None]
  - Urticaria [None]

NARRATIVE: CASE EVENT DATE: 20200730
